FAERS Safety Report 21640272 (Version 4)
Quarter: 2022Q4

REPORT INFORMATION
  Report Type: Report from Study
  Country: US (occurrence: US)
  Receive Date: 20221124
  Receipt Date: 20221216
  Transmission Date: 20230113
  Serious: No
  Sender: FDA-Public Use
  Company Number: US-002147023-NVSC2022US264637

PATIENT
  Age: 56 Year
  Sex: Female

DRUGS (2)
  1. COSENTYX [Suspect]
     Active Substance: SECUKINUMAB
     Indication: Psoriasis
     Dosage: 300 MG, QMO
     Route: 058
  2. COSENTYX [Suspect]
     Active Substance: SECUKINUMAB
     Indication: Guttate psoriasis
     Dosage: 150 MG
     Route: 058

REACTIONS (11)
  - Influenza [Unknown]
  - Cough [Unknown]
  - Pyrexia [Unknown]
  - Blood pressure increased [Unknown]
  - Chills [Unknown]
  - Pain [Unknown]
  - Oral herpes [Unknown]
  - Diarrhoea [Unknown]
  - Illness [Unknown]
  - Incorrect dosage administered [Unknown]
  - Product use in unapproved indication [Unknown]

NARRATIVE: CASE EVENT DATE: 20221208
